FAERS Safety Report 4339785-1 (Version None)
Quarter: 2004Q2

REPORT INFORMATION
  Report Type: 
  Country: None (occurrence: None)
  Receive Date: 20040416
  Receipt Date: 20040310
  Transmission Date: 20050107
  Serious: Yes (Hospitalization)
  Sender: FDA-Public Use
  Company Number: DK-BRISTOL-MYERS SQUIBB COMPANY-12534830

PATIENT
  Age: 60 Year
  Sex: Male
  Weight: 92 kg

DRUGS (4)
  1. CISPLATIN [Suspect]
     Indication: BLADDER CANCER
     Dosage: 1ST DOSE - 22-OCT-2003
     Dates: start: 20031219, end: 20031219
  2. PACLITAXEL [Suspect]
     Indication: BLADDER CANCER
     Dosage: 1ST DOSE - 22-OCT-2003
     Dates: start: 20031226, end: 20031226
  3. GEMCITABINE [Suspect]
     Indication: BLADDER CANCER
     Dosage: 1ST DOSE - 22-OCT-2003
     Dates: start: 20031226, end: 20031226
  4. ALLOPURINOL [Concomitant]
     Route: 048

REACTIONS (4)
  - ANAEMIA [None]
  - BLOOD CREATININE INCREASED [None]
  - CATHETER RELATED INFECTION [None]
  - GASTRITIS [None]
